FAERS Safety Report 7980567-7 (Version None)
Quarter: 2011Q4

REPORT INFORMATION
  Report Type: 
  Country: None (occurrence: None)
  Receive Date: 20111214
  Receipt Date: 20111206
  Transmission Date: 20120403
  Serious: Yes (Hospitalization)
  Sender: FDA-Public Use
  Company Number: FR-PFIZER INC-K201100719

PATIENT
  Age: 86 Year
  Sex: Female

DRUGS (1)
  1. RAMIPRIL [Suspect]
     Dosage: 1 DF, 1X/DAY
     Route: 048
     Dates: start: 20101126, end: 20110115

REACTIONS (3)
  - RENAL FAILURE ACUTE [None]
  - ERYSIPELAS [None]
  - ASTHENIA [None]
